FAERS Safety Report 12485852 (Version 2)
Quarter: 2016Q3

REPORT INFORMATION
  Report Type: Report from Study
  Country: US (occurrence: US)
  Receive Date: 20160621
  Receipt Date: 20160808
  Transmission Date: 20161109
  Serious: Yes (Other)
  Sender: FDA-Public Use
  Company Number: US-009507513-1606USA009599

PATIENT

DRUGS (6)
  1. ABT-530 [Suspect]
     Active Substance: PIBRENTASVIR
     Indication: HEPATIC CIRRHOSIS
     Dosage: 120 MG, QD
  2. REBETOL [Suspect]
     Active Substance: RIBAVIRIN
     Indication: HEPATIC CIRRHOSIS
     Dosage: 800 MG, QD
     Route: 048
  3. REBETOL [Suspect]
     Active Substance: RIBAVIRIN
     Indication: HEPATITIS C
  4. ABT-493 [Suspect]
     Active Substance: GLECAPREVIR
     Indication: HEPATIC CIRRHOSIS
     Dosage: 300 MG, QD
  5. ABT-493 [Suspect]
     Active Substance: GLECAPREVIR
     Indication: HEPATITIS C
  6. ABT-530 [Suspect]
     Active Substance: PIBRENTASVIR
     Indication: HEPATITIS C

REACTIONS (1)
  - Anaemia [Unknown]
